FAERS Safety Report 9692901 (Version 3)
Quarter: 2018Q4

REPORT INFORMATION
  Report Type: Report from Study
  Country: US (occurrence: US)
  Receive Date: 20131118
  Receipt Date: 20181231
  Transmission Date: 20190205
  Serious: Yes (Other)
  Sender: FDA-Public Use
  Company Number: US-ROCHE-1303297

PATIENT

DRUGS (3)
  1. ALISERTIB [Suspect]
     Active Substance: ALISERTIB
     Indication: B-CELL LYMPHOMA
     Route: 048
  2. RITUXIMAB. [Suspect]
     Active Substance: RITUXIMAB
     Indication: B-CELL LYMPHOMA
     Route: 042
  3. VINCRISTINE [Suspect]
     Active Substance: VINCRISTINE
     Indication: B-CELL LYMPHOMA
     Dosage: ON DAYS 1 AND 8 OF 21-DAY CYCLE
     Route: 042

REACTIONS (15)
  - Stomatitis [Unknown]
  - Neutropenia [Unknown]
  - Fatigue [Unknown]
  - Leukopenia [Unknown]
  - Anaemia [Unknown]
  - Febrile neutropenia [Unknown]
  - Thrombocytopenia [Unknown]
  - Bacteraemia [Unknown]
  - Palmar-plantar erythrodysaesthesia syndrome [Unknown]
  - Septic shock [Unknown]
  - Neutrophil count decreased [Unknown]
  - Lymphopenia [Unknown]
  - Platelet count decreased [Unknown]
  - Pneumonia [Unknown]
  - Enterobacter bacteraemia [Unknown]
